FAERS Safety Report 22892563 (Version 3)
Quarter: 2024Q2

REPORT INFORMATION
  Report Type: Spontaneous
  Country: US (occurrence: US)
  Receive Date: 20230901
  Receipt Date: 20240509
  Transmission Date: 20240716
  Serious: Yes (Other)
  Sender: FDA-Public Use
  Company Number: US-ORGANON-O2308USA003150

PATIENT
  Sex: Female

DRUGS (7)
  1. FOLLISTIM AQ [Suspect]
     Active Substance: FOLLITROPIN
     Indication: In vitro fertilisation
     Dosage: 300 IU/0.36ML, INJECT 100 UNITS UNDER THE SKIN
     Route: 058
     Dates: start: 20230815
  2. FOLLISTIM AQ [Suspect]
     Active Substance: FOLLITROPIN
  3. FOLLISTIM AQ [Suspect]
     Active Substance: FOLLITROPIN
     Dosage: 900 IU/1.08ML, INJECT 100 UNITS UNDER THE SKIN
     Route: 058
     Dates: start: 20230815
  4. FOLLISTIM AQ [Suspect]
     Active Substance: FOLLITROPIN
  5. GANIRELIX ACETATE [Concomitant]
     Active Substance: GANIRELIX ACETATE
     Dosage: UNK
  6. MENOPUR [Concomitant]
     Active Substance: FOLLITROPIN\LUTEINIZING HORMONE
     Dosage: 75IU SDVW/Q-CAP
  7. NOVAREL [Concomitant]
     Active Substance: CHORIOGONADOTROPIN ALFA
     Dosage: 5000 UNIT MDV30

REACTIONS (1)
  - Leukaemia [Unknown]
